FAERS Safety Report 14116029 (Version 3)
Quarter: 2018Q2

REPORT INFORMATION
  Report Type: Not Available
  Country: US (occurrence: US)
  Receive Date: 20171023
  Receipt Date: 20180405
  Transmission Date: 20180711
  Serious: No
  Sender: FDA-Public Use
  Company Number: US-NEUROCRINE BIOSCIENCES INC.-2017NBI00994

PATIENT
  Age: 82 Year
  Sex: Male

DRUGS (22)
  1. IRON [Concomitant]
     Active Substance: IRON
  2. OMEPRAZOLE. [Concomitant]
     Active Substance: OMEPRAZOLE
  3. STIOLTO RESPIMAT [Concomitant]
     Active Substance: OLODATEROL HYDROCHLORIDE\TIOTROPIUM BROMIDE MONOHYDRATE
  4. ATORVASTATIN [Concomitant]
     Active Substance: ATORVASTATIN
  5. FOLIC ACID. [Concomitant]
     Active Substance: FOLIC ACID
  6. PAROXETINE. [Concomitant]
     Active Substance: PAROXETINE
  7. PROBIOTIC [Concomitant]
     Active Substance: PROBIOTICS NOS
  8. INGREZZA [Suspect]
     Active Substance: VALBENAZINE
     Indication: TARDIVE DYSKINESIA
     Route: 048
     Dates: start: 20170914, end: 20170921
  9. STIOLTO RESPIMAT [Concomitant]
     Active Substance: OLODATEROL HYDROCHLORIDE\TIOTROPIUM BROMIDE MONOHYDRATE
  10. VITAMIN B12 [Concomitant]
     Active Substance: CYANOCOBALAMIN
  11. LEVOTHYROXINE. [Concomitant]
     Active Substance: LEVOTHYROXINE
  12. METHOTREXATE. [Concomitant]
     Active Substance: METHOTREXATE
  13. POTASSIUM [Concomitant]
     Active Substance: POTASSIUM
  14. TAMSULOSIN [Concomitant]
     Active Substance: TAMSULOSIN
  15. XALATAN [Concomitant]
     Active Substance: LATANOPROST
     Route: 047
  16. CALCIUM [Concomitant]
     Active Substance: CALCIUM
  17. FUROSEMIDE. [Concomitant]
     Active Substance: FUROSEMIDE
  18. INGREZZA [Suspect]
     Active Substance: VALBENAZINE
     Route: 048
     Dates: start: 20170922, end: 20180110
  19. COQ10 [Concomitant]
     Active Substance: UBIDECARENONE
  20. PRESERVISION [Concomitant]
     Active Substance: MINERALS\VITAMINS
  21. SULFASALAZINE. [Concomitant]
     Active Substance: SULFASALAZINE
  22. WARFARIN [Concomitant]
     Active Substance: WARFARIN

REACTIONS (8)
  - Somnolence [Unknown]
  - Disturbance in attention [Recovered/Resolved]
  - Pain [Unknown]
  - Lethargy [Recovered/Resolved]
  - Confusional state [Recovered/Resolved]
  - Influenza like illness [Recovered/Resolved]
  - Vomiting [Unknown]
  - Fatigue [Recovered/Resolved]

NARRATIVE: CASE EVENT DATE: 2017
